FAERS Safety Report 14619488 (Version 3)
Quarter: 2021Q1

REPORT INFORMATION
  Report Type: Report from Study
  Country: US (occurrence: US)
  Receive Date: 20180309
  Receipt Date: 20210114
  Transmission Date: 20210419
  Serious: Yes (Other)
  Sender: FDA-Public Use
  Company Number: US-VERTEX PHARMACEUTICALS-2015-003678

PATIENT
  Age: 34 Year
  Sex: Male
  Weight: 78 kg

DRUGS (13)
  1. HYPERSAL [Concomitant]
     Active Substance: SODIUM CHLORIDE
     Dosage: 4 ML, BID
     Route: 055
  2. ORKAMBI [Suspect]
     Active Substance: IVACAFTOR\LUMACAFTOR
     Indication: CYSTIC FIBROSIS
     Dosage: 1 DF(200/125 MG EACH), BID
     Route: 048
     Dates: start: 20150803, end: 20160825
  3. CREON [Concomitant]
     Active Substance: PANCRELIPASE AMYLASE\PANCRELIPASE LIPASE\PANCRELIPASE PROTEASE
  4. PRILOSEC [Concomitant]
     Active Substance: OMEPRAZOLE MAGNESIUM
     Indication: GASTROOESOPHAGEAL REFLUX DISEASE
     Dosage: 20 MG, BID, CAPSULE
     Route: 048
  5. AUGMENTIN [Concomitant]
     Active Substance: AMOXICILLIN\CLAVULANATE POTASSIUM
     Dosage: 1 DF, BID, TABLET
     Route: 048
  6. ZENPEP [Concomitant]
     Active Substance: PANCRELIPASE AMYLASE\PANCRELIPASE LIPASE\PANCRELIPASE PROTEASE
     Dosage: 3 DF, TID
     Route: 048
     Dates: start: 2015
  7. ORKAMBI [Suspect]
     Active Substance: IVACAFTOR\LUMACAFTOR
     Dosage: UNK
     Route: 048
     Dates: end: 20161201
  8. ALBUTEROL. [Concomitant]
     Active Substance: ALBUTEROL
     Dosage: 1 ML, Q4HRS, PRN, NEBULISER SOLUTION
     Route: 055
  9. CLARITIN [Concomitant]
     Active Substance: LORATADINE
     Dosage: 10 MG, QD, TABLET
     Route: 048
  10. ADVAIR HFA [Concomitant]
     Active Substance: FLUTICASONE PROPIONATE\SALMETEROL XINAFOATE
     Dosage: 1 PUFF, BID
     Route: 055
  11. PULMOZYME [Concomitant]
     Active Substance: DORNASE ALFA
     Dosage: 2.5 MG, QD
     Route: 055
     Dates: start: 2009
  12. AQUADEKS [Concomitant]
     Active Substance: MINERALS\VITAMINS
     Dosage: UNK, BID, CAPSULE
     Route: 048
  13. LORATADINE. [Concomitant]
     Active Substance: LORATADINE

REACTIONS (33)
  - Blood creatine phosphokinase increased [Unknown]
  - Dyspnoea [Recovering/Resolving]
  - Nervous system disorder [Unknown]
  - Irritability [Recovered/Resolved]
  - Memory impairment [Not Recovered/Not Resolved]
  - Testicular pain [Unknown]
  - Hepatic enzyme increased [Recovered/Resolved]
  - Vision blurred [Recovered/Resolved]
  - Decreased appetite [Not Recovered/Not Resolved]
  - Gait disturbance [Unknown]
  - Muscular weakness [Not Recovered/Not Resolved]
  - Eye pruritus [Recovered/Resolved]
  - Vision blurred [Recovered/Resolved]
  - Blood thyroid stimulating hormone increased [Recovered/Resolved]
  - Muscle spasms [Not Recovered/Not Resolved]
  - Muscle fatigue [Not Recovered/Not Resolved]
  - Dyspepsia [Not Recovered/Not Resolved]
  - Procedural pain [Unknown]
  - Weight decreased [Unknown]
  - Dizziness [Recovered/Resolved]
  - Palpitations [Recovered/Resolved]
  - Alopecia [Recovered/Resolved]
  - Acne [Not Recovered/Not Resolved]
  - Ocular hyperaemia [Recovered/Resolved]
  - Frustration tolerance decreased [Recovered/Resolved]
  - Skin burning sensation [Recovered/Resolved]
  - Dry eye [Unknown]
  - Corneal abrasion [Unknown]
  - Anxiety [Recovered/Resolved]
  - Muscle twitching [Recovered/Resolved]
  - Fatigue [Unknown]
  - Illness [Recovered/Resolved]
  - Anger [Recovered/Resolved]

NARRATIVE: CASE EVENT DATE: 2015
